FAERS Safety Report 25012721 (Version 3)
Quarter: 2025Q2

REPORT INFORMATION
  Report Type: Spontaneous
  Country: GB (occurrence: GB)
  Receive Date: 20250226
  Receipt Date: 20250512
  Transmission Date: 20250717
  Serious: Yes (Hospitalization)
  Sender: MYLAN
  Company Number: GB-MYLANLABS-2024M1070161

PATIENT
  Sex: Female

DRUGS (20)
  1. CLOZARIL [Suspect]
     Active Substance: CLOZAPINE
     Indication: Schizoaffective disorder
     Route: 048
  2. CLOZARIL [Suspect]
     Active Substance: CLOZAPINE
     Indication: Schizophrenia
     Route: 048
  3. CLOZARIL [Suspect]
     Active Substance: CLOZAPINE
  4. CLOZARIL [Suspect]
     Active Substance: CLOZAPINE
  5. CLOZARIL [Suspect]
     Active Substance: CLOZAPINE
     Route: 065
  6. CLOZARIL [Suspect]
     Active Substance: CLOZAPINE
     Route: 065
  7. CLOZARIL [Suspect]
     Active Substance: CLOZAPINE
  8. CLOZARIL [Suspect]
     Active Substance: CLOZAPINE
  9. CLOZARIL [Suspect]
     Active Substance: CLOZAPINE
  10. CLOZARIL [Suspect]
     Active Substance: CLOZAPINE
  11. CLOZARIL [Suspect]
     Active Substance: CLOZAPINE
     Route: 048
  12. CLOZARIL [Suspect]
     Active Substance: CLOZAPINE
     Route: 048
  13. CLOZARIL [Suspect]
     Active Substance: CLOZAPINE
  14. CLOZARIL [Suspect]
     Active Substance: CLOZAPINE
  15. CLOZARIL [Suspect]
     Active Substance: CLOZAPINE
     Route: 048
  16. CLOZARIL [Suspect]
     Active Substance: CLOZAPINE
     Route: 048
  17. RISPERIDONE [Concomitant]
     Active Substance: RISPERIDONE
  18. RISPERIDONE [Concomitant]
     Active Substance: RISPERIDONE
     Route: 065
  19. RISPERIDONE [Concomitant]
     Active Substance: RISPERIDONE
     Route: 065
  20. RISPERIDONE [Concomitant]
     Active Substance: RISPERIDONE

REACTIONS (5)
  - Hospitalisation [Recovered/Resolved]
  - Patient elopement [Unknown]
  - Treatment noncompliance [Unknown]
  - Therapy interrupted [Recovered/Resolved]
  - Off label use [Unknown]

NARRATIVE: CASE EVENT DATE: 20250101
